FAERS Safety Report 23086909 (Version 2)
Quarter: 2023Q4

REPORT INFORMATION
  Report Type: Report from Study
  Country: US (occurrence: US)
  Receive Date: 20231020
  Receipt Date: 20231205
  Transmission Date: 20240110
  Serious: Yes (Hospitalization, Other)
  Sender: FDA-Public Use
  Company Number: US-ABBVIE-5454483

PATIENT
  Sex: Female
  Weight: 90.264 kg

DRUGS (36)
  1. RINVOQ [Suspect]
     Active Substance: UPADACITINIB
     Indication: Ankylosing spondylitis
     Dosage: FROM STRENGTH:15 MG
     Route: 048
     Dates: start: 20230901
  2. RINVOQ [Suspect]
     Active Substance: UPADACITINIB
     Indication: Ankylosing spondylitis
     Dosage: FROM STRENGTH: 15MG?STOP DATE: 2023
     Route: 048
     Dates: start: 20230524
  3. HUMAN HEPATITIS B VIRUS IMMUNE GLOBULIN [Concomitant]
     Active Substance: HUMAN HEPATITIS B VIRUS IMMUNE GLOBULIN
     Indication: Product used for unknown indication
     Dosage: TIME INTERVAL: TOTAL
     Dates: start: 20230928, end: 20231128
  4. HUMAN HEPATITIS B VIRUS IMMUNE GLOBULIN [Concomitant]
     Active Substance: HUMAN HEPATITIS B VIRUS IMMUNE GLOBULIN
     Indication: Product used for unknown indication
     Dosage: TIME INTERVAL: TOTAL
     Dates: start: 20231128, end: 20231128
  5. HEPATITIS A [Concomitant]
     Indication: Product used for unknown indication
     Dosage: TIME INTERVAL: TOTAL
     Dates: start: 20231128, end: 20231128
  6. HEPATITIS A [Concomitant]
     Indication: Product used for unknown indication
     Dosage: TIME INTERVAL: TOTAL
     Dates: start: 20230928, end: 20230928
  7. COVID-19 vaccine [Concomitant]
     Indication: COVID-19 immunisation
     Dosage: TIME INTERVAL: TOTAL
     Route: 030
     Dates: start: 20230928, end: 20230928
  8. COVID-19 vaccine [Concomitant]
     Indication: COVID-19 immunisation
     Dosage: TIME INTERVAL: TOTAL
     Route: 030
     Dates: start: 20230726, end: 20230726
  9. INFLUENZA VIRUS VACCINE [Concomitant]
     Active Substance: INFLUENZA VIRUS VACCINE
     Indication: Product used for unknown indication
     Dosage: TIME INTERVAL: TOTAL
     Route: 030
     Dates: start: 20230928, end: 20230928
  10. RESPIRATORY SYNCYTIAL VIRUS IMMUNE GLOBULIN INTRAVENOUS (HUMAN) [Concomitant]
     Active Substance: RESPIRATORY SYNCYTIAL VIRUS IMMUNE GLOBULIN INTRAVENOUS (HUMAN)
     Indication: Product used for unknown indication
     Dosage: TIME INTERVAL: TOTAL
     Route: 030
     Dates: start: 20230928, end: 20230928
  11. DICLOFENAC [Concomitant]
     Active Substance: DICLOFENAC
     Indication: Antiinflammatory therapy
     Dosage: FORM STRENGTH: 50 MG
     Route: 048
  12. QUETIAPINE [Concomitant]
     Active Substance: QUETIAPINE
     Indication: Product used for unknown indication
     Dosage: FORM STRENGTH: 50 MG
     Route: 048
  13. HUMAN VARICELLA-ZOSTER IMMUNE GLOBULIN [Concomitant]
     Active Substance: HUMAN VARICELLA-ZOSTER IMMUNE GLOBULIN
     Indication: Product used for unknown indication
     Dosage: SHINGLES VACCINE
  14. TETANUS TOXOIDS [Concomitant]
     Active Substance: TETANUS TOXOIDS
     Indication: Product used for unknown indication
  15. LEVOTHYROXINE SODIUM [Concomitant]
     Active Substance: LEVOTHYROXINE SODIUM
     Indication: Product used for unknown indication
     Dosage: UNIT DOSE 75 MICRO GRAM?FORM STRENGTH: 0.075 MG
     Route: 048
  16. EFFEXOR [Concomitant]
     Active Substance: VENLAFAXINE HYDROCHLORIDE
     Indication: Product used for unknown indication
     Dosage: 75 MG CAPSULE
     Route: 048
  17. CELEBREX [Concomitant]
     Active Substance: CELECOXIB
     Indication: Product used for unknown indication
     Dosage: FORM STRENGTH: 200 MG
     Route: 048
  18. PILOCARPINE HYDROCHLORIDE [Concomitant]
     Active Substance: PILOCARPINE HYDROCHLORIDE
     Indication: Sjogren^s syndrome
     Dosage: FORM STRENGTH: 5MG?UPTO 8 TIMES PER DAY
     Route: 048
  19. REFRESH CLASSIC [Concomitant]
     Active Substance: POLYVINYL ALCOHOL\POVIDONE
     Indication: Sjogren^s syndrome
     Dosage: TIME INTERVAL: 0.33333333 DAYS: 1 TO 2 DROPS ON BOTH EYE
  20. ALPRAZOLAM [Concomitant]
     Active Substance: ALPRAZOLAM
     Indication: Anxiety
     Dosage: TIME INTERVAL: 0.33333333 DAYS: FORM STRENGTH: 0.5MG?AS NEEDED
     Route: 048
  21. VENLAFAXINE [Concomitant]
     Active Substance: VENLAFAXINE HYDROCHLORIDE
     Indication: Depression
     Dosage: 3 CAPSULE IN MORNING?FORM STRENGTH: 75 MG
     Route: 048
  22. ADDERALL [Concomitant]
     Active Substance: AMPHETAMINE ASPARTATE\AMPHETAMINE SULFATE\DEXTROAMPHETAMINE SACCHARATE\DEXTROAMPHETAMINE SULFATE
     Indication: Fibromyalgia
     Dosage: HALF TABLET 2TIMES ON DAY?FORM STRENGTH: 10 MG
     Route: 048
  23. NURTEC ODT [Concomitant]
     Active Substance: RIMEGEPANT SULFATE
     Indication: Migraine
     Dosage: TIME INTERVAL: AS NECESSARY: FORM STRENGTH: 75 MG
     Route: 048
  24. MAGNESIUM [Concomitant]
     Active Substance: MAGNESIUM
     Indication: Mineral supplementation
     Dosage: FORM STRENGTH:250 MG
     Route: 048
  25. VITAMIN D3 [Concomitant]
     Active Substance: CHOLECALCIFEROL
     Indication: Vitamin supplementation
     Dosage: DOSE FORM : SOFT GEL?FORM STRENGTH: 50 MICRO GRAM
     Route: 048
  26. FENOFIBRATE [Concomitant]
     Active Substance: FENOFIBRATE
     Indication: Blood cholesterol abnormal
     Dosage: FORM STRENGTH:54 MG
     Route: 048
  27. HYDROXYZINE [Concomitant]
     Active Substance: HYDROXYZINE HYDROCHLORIDE
     Indication: Neurodermatitis
     Dosage: FORM STRENGTH: 25 MG?AS NEEDED
     Route: 048
  28. FLUTICASONE PROPIONATE [Concomitant]
     Active Substance: FLUTICASONE PROPIONATE
     Indication: Multiple allergies
     Dosage: 2 SPRAY EACH NOSTRIL?FORM STRENGTH:50 MICROGRAM EACH SPRAY
  29. FLUOXETINE [Concomitant]
     Active Substance: FLUOXETINE HYDROCHLORIDE
     Indication: Product used for unknown indication
     Dosage: FORM STRENGTH: 40MG
     Route: 048
  30. SALAGEN [Concomitant]
     Active Substance: PILOCARPINE HYDROCHLORIDE
     Indication: Product used for unknown indication
     Dosage: FROM STRENGTH:5MG
     Route: 048
  31. CALCIUM CARBONATE [Concomitant]
     Active Substance: CALCIUM CARBONATE
     Indication: Product used for unknown indication
     Dosage: FORM STRENGTH: 1250 MG CHEWABLE TABLET
     Route: 048
  32. CHOLECALCIFEROL [Concomitant]
     Active Substance: CHOLECALCIFEROL
     Indication: Product used for unknown indication
     Dosage: FORM STRENGTH: 0.05MG
     Route: 048
  33. GABAPENTIN [Concomitant]
     Active Substance: GABAPENTIN
     Indication: Neuralgia
     Dosage: TIME INTERVAL: 0.33333333 DAYS: FORM STRENGTH: 800 MG
     Route: 048
  34. ACETAMINOPHEN\HYDROCODONE [Concomitant]
     Active Substance: ACETAMINOPHEN\HYDROCODONE
     Indication: Spinal stenosis
     Dosage: TIME INTERVAL: 0.33333333 DAYS: FROM STRENGTH: 10 TO 325 MG?1 TAB 3 TIMES PER DAY AS NEEDED
     Route: 048
  35. TIZANIDINE [Concomitant]
     Active Substance: TIZANIDINE
     Indication: Muscle relaxant therapy
     Dosage: FORM STRENGTH: 4MG
     Route: 048
  36. MELATONIN [Concomitant]
     Active Substance: MELATONIN
     Indication: Sleep disorder therapy
     Dosage: FORM STRENGTH: 3MG?ONE TO THREE TABLET AT NIGHT
     Route: 048

REACTIONS (32)
  - Arthritis [Unknown]
  - Spinal fracture [Unknown]
  - Essential hypertension [Not Recovered/Not Resolved]
  - Seasonal allergy [Unknown]
  - Fibromyalgia [Not Recovered/Not Resolved]
  - Gastrooesophageal reflux disease [Not Recovered/Not Resolved]
  - Fall [Unknown]
  - Spinal decompression [Unknown]
  - Acute kidney injury [Not Recovered/Not Resolved]
  - Gait disturbance [Not Recovered/Not Resolved]
  - Peroneal nerve palsy [Not Recovered/Not Resolved]
  - Lumbar spinal stenosis [Not Recovered/Not Resolved]
  - Spinal cord operation [Unknown]
  - Spinal claudication [Not Recovered/Not Resolved]
  - Spinal osteoarthritis [Not Recovered/Not Resolved]
  - Migraine without aura [Unknown]
  - Obesity [Unknown]
  - Pleuritic pain [Unknown]
  - Neck pain [Unknown]
  - Chest pain [Unknown]
  - Pancreatic cyst [Unknown]
  - Oesophageal obstruction [Unknown]
  - Drug hypersensitivity [Unknown]
  - Dermatitis allergic [Unknown]
  - Pain [Unknown]
  - Lumbosacral radiculopathy [Unknown]
  - Paraesthesia [Unknown]
  - Pain in extremity [Unknown]
  - Pathological fracture [Unknown]
  - Intervertebral disc degeneration [Unknown]
  - Osteoporosis [Unknown]
  - Spinal compression fracture [Unknown]

NARRATIVE: CASE EVENT DATE: 20230101
